FAERS Safety Report 16361549 (Version 1)
Quarter: 2019Q2

REPORT INFORMATION
  Report Type: Spontaneous
  Country: US (occurrence: US)
  Receive Date: 20190528
  Receipt Date: 20190528
  Transmission Date: 20190711
  Serious: No
  Sender: FDA-Public Use
  Company Number: US-PFIZER INC-2019216426

PATIENT
  Age: 70 Year
  Sex: Female

DRUGS (2)
  1. NALBUPHINE HYDROCHLORIDE. [Suspect]
     Active Substance: NALBUPHINE HYDROCHLORIDE
     Dosage: 20 MG, (1ML 4-6 TIMES PER DAY)
  2. NALBUPHINE HYDROCHLORIDE. [Suspect]
     Active Substance: NALBUPHINE HYDROCHLORIDE
     Indication: NEURALGIA
     Dosage: UNK
     Dates: start: 1995

REACTIONS (5)
  - Arthritis [Unknown]
  - Drug ineffective for unapproved indication [Unknown]
  - Product storage error [Unknown]
  - Product administration error [Unknown]
  - Off label use [Unknown]
